FAERS Safety Report 25508012 (Version 1)
Quarter: 2025Q3

REPORT INFORMATION
  Report Type: Spontaneous
  Country: US (occurrence: US)
  Receive Date: 20250703
  Receipt Date: 20250703
  Transmission Date: 20251020
  Serious: No
  Sender: BIOGEN
  Company Number: US-BIOGEN-2025BI01303776

PATIENT
  Sex: Female

DRUGS (2)
  1. SKYCLARYS [Suspect]
     Active Substance: OMAVELOXOLONE
     Indication: Friedreich^s ataxia
     Route: 050
     Dates: start: 20231208
  2. MEGESTROL [Suspect]
     Active Substance: MEGESTROL
     Indication: Product used for unknown indication
     Dosage: 0.1 ML DAILY
     Route: 050
     Dates: end: 20250220

REACTIONS (4)
  - Weight increased [Unknown]
  - Accident [Unknown]
  - Ankle fracture [Unknown]
  - Ligament sprain [Unknown]
